FAERS Safety Report 15737005 (Version 1)
Quarter: 2018Q4

REPORT INFORMATION
  Report Type: Spontaneous
  Country: AE (occurrence: AE)
  Receive Date: 20181218
  Receipt Date: 20181218
  Transmission Date: 20190205
  Serious: Yes (Other)
  Sender: FDA-Public Use
  Company Number: PHHY2018AE178056

PATIENT
  Age: 37 Year

DRUGS (1)
  1. JADENU [Suspect]
     Active Substance: DEFERASIROX
     Indication: PRODUCT USED FOR UNKNOWN INDICATION
     Dosage: 23 MG/KG, UNK
     Route: 065

REACTIONS (3)
  - Blood phosphorus decreased [Unknown]
  - Blood potassium decreased [Unknown]
  - Renal tubular acidosis [Unknown]

NARRATIVE: CASE EVENT DATE: 20180919
